FAERS Safety Report 5205453-7 (Version None)
Quarter: 2006Q4

REPORT INFORMATION
  Report Type: 
  Country: None (occurrence: None)
  Receive Date: 20061027
  Receipt Date: 20060217
  Transmission Date: 20070319
  Serious: Yes (Other)
  Sender: FDA-Public Use
  Company Number: HQWYE166117MAR05

PATIENT
  Age: 58 Year
  Sex: Female
  Weight: 56.3 kg

DRUGS (4)
  1. PREMARIN [Suspect]
     Indication: MENOPAUSAL SYMPTOMS
     Dosage: UNSPECIFIED, ORAL
     Route: 048
     Dates: start: 19750101, end: 20000101
  2. CYCRIN [Suspect]
     Indication: HORMONE REPLACEMENT THERAPY
  3. ESTRADERM [Suspect]
     Indication: MENOPAUSAL SYMPTOMS
     Dosage: UNSPECIFIED, TOPICAL
     Route: 061
     Dates: start: 19750101, end: 20000101
  4. ESTROVIS [Suspect]
     Indication: MENOPAUSAL SYMPTOMS
     Dosage: UNSPECIFIED, ORAL
     Route: 048
     Dates: start: 19750101, end: 20000101

REACTIONS (1)
  - BREAST CANCER [None]
